FAERS Safety Report 6359875-1 (Version None)
Quarter: 2009Q3

REPORT INFORMATION
  Report Type: 
  Country: None (occurrence: None)
  Receive Date: 20090917
  Receipt Date: 20090915
  Transmission Date: 20100115
  Serious: Yes (Hospitalization)
  Sender: FDA-Public Use
  Company Number: US-BRISTOL-MYERS SQUIBB COMPANY-14772354

PATIENT
  Age: 51 Year
  Sex: Female
  Weight: 122 kg

DRUGS (4)
  1. ABILIFY [Suspect]
     Indication: WEIGHT INCREASED
     Route: 048
     Dates: start: 20080819
  2. ABILIFY [Suspect]
     Indication: BIPOLAR DISORDER
     Route: 048
     Dates: start: 20080819
  3. LITHIUM CARBONATE [Suspect]
     Dosage: 1DF =450 UNIT NOT CLEAR; RECEIVED THE DRUG IN MORNING AND AT BED TIME.
  4. ZYPREXA [Concomitant]

REACTIONS (1)
  - ABNORMAL BEHAVIOUR [None]
